FAERS Safety Report 8347214-6 (Version None)
Quarter: 2012Q2

REPORT INFORMATION
  Report Type: 
  Country: None (occurrence: None)
  Receive Date: 20120509
  Receipt Date: 20120402
  Transmission Date: 20120825
  Serious: No
  Sender: FDA-Public Use
  Company Number: US-BAUSCH-2012BL002385

PATIENT
  Age: 75 Year
  Sex: Female

DRUGS (3)
  1. SULFANILAMIDE [Concomitant]
  2. DORZOLAMIDE HCL AND TIMOLOL MALEATE [Suspect]
     Indication: GLAUCOMA
     Route: 047
     Dates: start: 20100501
  3. BACTROBAN [Concomitant]
     Indication: EPISTAXIS

REACTIONS (1)
  - EPISTAXIS [None]
